FAERS Safety Report 19640788 (Version 2)
Quarter: 2021Q4

REPORT INFORMATION
  Report Type: Other
  Country: JP (occurrence: JP)
  Receive Date: 20210730
  Receipt Date: 20211203
  Transmission Date: 20220303
  Serious: Yes (Other)
  Sender: FDA-Public Use
  Company Number: JP-CHUGAI-A2021015511ROCHE

PATIENT
  Age: 76 Year
  Sex: Male
  Weight: 63.5 kg

DRUGS (7)
  1. ATEZOLIZUMAB [Suspect]
     Active Substance: ATEZOLIZUMAB
     Indication: Small cell lung cancer extensive stage
     Dosage: MOST RECENT DOSE PRIOR TO 14/JUL/2021
     Route: 041
     Dates: start: 20210309
  2. CARBOPLATIN [Suspect]
     Active Substance: CARBOPLATIN
     Indication: Small cell lung cancer extensive stage
     Dosage: DOSE INTERVAL UNCERTAINTY
     Route: 041
     Dates: start: 20210309
  3. CARBOPLATIN [Suspect]
     Active Substance: CARBOPLATIN
     Dosage: DOSE INTERVAL UNCERTAINTY
     Route: 041
     Dates: start: 20210331
  4. CARBOPLATIN [Suspect]
     Active Substance: CARBOPLATIN
     Dosage: DOSE INTERVAL UNCERTAINTY
     Route: 041
     Dates: start: 20210421, end: 20210512
  5. ETOPOSIDE [Suspect]
     Active Substance: ETOPOSIDE
     Indication: Small cell lung cancer extensive stage
     Dosage: DOSE INTERVAL UNCERTAINTY
     Route: 065
     Dates: start: 20210309
  6. ETOPOSIDE [Suspect]
     Active Substance: ETOPOSIDE
     Dosage: DOSE INTERVAL UNCERTAINTY
     Route: 065
     Dates: start: 20210331
  7. ETOPOSIDE [Suspect]
     Active Substance: ETOPOSIDE
     Dosage: DOSE INTERVAL UNCERTAINTY
     Route: 065
     Dates: start: 20210421, end: 20210514

REACTIONS (3)
  - Neutrophil count decreased [Recovered/Resolved]
  - Platelet count decreased [Recovered/Resolved]
  - Neutrophil count decreased [Recovered/Resolved]

NARRATIVE: CASE EVENT DATE: 20210316
